FAERS Safety Report 17324322 (Version 1)
Quarter: 2020Q1

REPORT INFORMATION
  Report Type: Spontaneous
  Country: US (occurrence: US)
  Receive Date: 20200109
  Receipt Date: 20200109
  Transmission Date: 20200409
  Serious: No
  Sender: FDA-Public Use
  Company Number: None

PATIENT
  Age: 17 Month
  Sex: Female
  Weight: 7.58 kg

DRUGS (7)
  1. THIOGUANINE (6-TG) [Suspect]
     Active Substance: THIOGUANINE ANHYDROUS
     Dates: end: 20191210
  2. TPN [Concomitant]
     Active Substance: AMINO ACIDS\DEXTROSE\ELECTROLYTES NOS\SOYBEAN OIL
  3. CEFEPIME [Concomitant]
     Active Substance: CEFEPIME HYDROCHLORIDE
  4. VANCOMYCIN [Concomitant]
     Active Substance: VANCOMYCIN
  5. MICAFUNGIN. [Concomitant]
     Active Substance: MICAFUNGIN SODIUM
  6. DAUNORUBICIN [Suspect]
     Active Substance: DAUNORUBICIN
     Dates: end: 20191210
  7. CYTARABINE. [Suspect]
     Active Substance: CYTARABINE
     Dates: end: 20191211

REACTIONS (2)
  - Hepatitis [None]
  - Hepatic vascular resistance increased [None]

NARRATIVE: CASE EVENT DATE: 20191230
